FAERS Safety Report 15065212 (Version 3)
Quarter: 2018Q3

REPORT INFORMATION
  Report Type: Report from Study
  Country: None (occurrence: US)
  Receive Date: 20180626
  Receipt Date: 20180710
  Transmission Date: 20181010
  Serious: Yes (Death, Hospitalization, Other)
  Sender: FDA-Public Use
  Company Number: US-ABBVIE-18S-163-2400030-00

PATIENT
  Age: 101 Year
  Sex: Female
  Weight: 39.04 kg

DRUGS (4)
  1. CREON [Suspect]
     Active Substance: PANCRELIPASE AMYLASE\PANCRELIPASE LIPASE\PANCRELIPASE PROTEASE
     Indication: DYSPEPSIA
     Dosage: 3 CAPS WITH EACH MEAL AND SNACK
     Route: 048
  2. CREON [Suspect]
     Active Substance: PANCRELIPASE AMYLASE\PANCRELIPASE LIPASE\PANCRELIPASE PROTEASE
     Indication: MALNUTRITION
  3. PROBIOTIC [Concomitant]
     Active Substance: PROBIOTICS NOS
     Indication: PRODUCT USED FOR UNKNOWN INDICATION
  4. POTASSIUM [Concomitant]
     Active Substance: POTASSIUM
     Indication: PRODUCT USED FOR UNKNOWN INDICATION

REACTIONS (15)
  - Infection [Fatal]
  - Pharyngeal oedema [Not Recovered/Not Resolved]
  - Throat irritation [Not Recovered/Not Resolved]
  - Wrong technique in product usage process [Unknown]
  - Weight decreased [Not Recovered/Not Resolved]
  - Joint swelling [Not Recovered/Not Resolved]
  - Oral mucosal blistering [Not Recovered/Not Resolved]
  - Joint injury [Recovered/Resolved]
  - Lower limb fracture [Not Recovered/Not Resolved]
  - Thermal burn [Not Recovered/Not Resolved]
  - Choking [Fatal]
  - Hypophagia [Not Recovered/Not Resolved]
  - Burn oesophageal [Not Recovered/Not Resolved]
  - Dysphagia [Not Recovered/Not Resolved]
  - Candida infection [Not Recovered/Not Resolved]

NARRATIVE: CASE EVENT DATE: 2018
